FAERS Safety Report 6417915-5 (Version None)
Quarter: 2009Q4

REPORT INFORMATION
  Report Type: 
  Country: None (occurrence: None)
  Receive Date: 20091028
  Receipt Date: 20091020
  Transmission Date: 20100525
  Serious: Yes (Hospitalization)
  Sender: FDA-Public Use
  Company Number: B0597421A

PATIENT
  Sex: Female

DRUGS (2)
  1. LANOXIN [Suspect]
     Dosage: .25MG PER DAY
     Route: 048
     Dates: start: 19920101, end: 20090801
  2. HEART MEDICATION [Concomitant]

REACTIONS (4)
  - AMNESIA [None]
  - FATIGUE [None]
  - MEMORY IMPAIRMENT [None]
  - THERAPEUTIC AGENT TOXICITY [None]
